FAERS Safety Report 9177973 (Version 1)
Quarter: 2013Q1

REPORT INFORMATION
  Report Type: Spontaneous
  Country: FR (occurrence: FR)
  Receive Date: 20130321
  Receipt Date: 20130321
  Transmission Date: 20140127
  Serious: Yes (Hospitalization, Other)
  Sender: FDA-Public Use
  Company Number: FR-ELI_LILLY_AND_COMPANY-FR201303003349

PATIENT
  Age: 88 Year
  Sex: Female

DRUGS (7)
  1. HUMALOG LISPRO [Suspect]
     Indication: INSULIN-REQUIRING TYPE 2 DIABETES MELLITUS
     Dosage: 38 IU, EACH MORNING
  2. HUMALOG LISPRO [Suspect]
     Dosage: 6 IU, EACH EVENING
     Route: 058
  3. HUMALOG LISPRO [Suspect]
     Dosage: UNK
     Route: 058
  4. FUROSEMIDE [Concomitant]
  5. COZAAR [Concomitant]
     Dosage: 50 MG, UNKNOWN
  6. LERCANIDIPINE [Concomitant]
     Dosage: 5 MG, QD
  7. ESOMEPRAZOLE [Concomitant]
     Dosage: 20 MG, QD

REACTIONS (11)
  - Hypoglycaemic unconsciousness [Recovered/Resolved]
  - Confusional state [Recovered/Resolved]
  - Incoherent [Recovered/Resolved]
  - Hypothermia [Recovered/Resolved]
  - Hypochromic anaemia [Unknown]
  - Cystitis klebsiella [Unknown]
  - Hyperkalaemia [Recovered/Resolved]
  - Skin ulcer [Unknown]
  - Diarrhoea [Recovered/Resolved]
  - Hypoglycaemia [Not Recovered/Not Resolved]
  - Incorrect dose administered [Recovered/Resolved]
